FAERS Safety Report 7905522-4 (Version None)
Quarter: 2011Q4

REPORT INFORMATION
  Report Type: 
  Country: None (occurrence: None)
  Receive Date: 20111110
  Receipt Date: 20111101
  Transmission Date: 20120403
  Serious: No
  Sender: FDA-Public Use
  Company Number: US-BIOGENIDEC-2011BI034748

PATIENT
  Sex: Female

DRUGS (1)
  1. TYSABRI [Suspect]
     Indication: MULTIPLE SCLEROSIS
     Route: 042
     Dates: start: 20090429

REACTIONS (19)
  - PAIN [None]
  - EPIGASTRIC DISCOMFORT [None]
  - ARTHROPATHY [None]
  - COUGH [None]
  - ARTHRALGIA [None]
  - OEDEMA PERIPHERAL [None]
  - FALL [None]
  - NON-CARDIAC CHEST PAIN [None]
  - MUSCULOSKELETAL STIFFNESS [None]
  - MUSCLE SPASMS [None]
  - GAIT DISTURBANCE [None]
  - FEELING ABNORMAL [None]
  - CHEST PAIN [None]
  - FATIGUE [None]
  - ASTHMA [None]
  - MUSCLE TIGHTNESS [None]
  - PAIN IN EXTREMITY [None]
  - ARTHRITIS [None]
  - BRONCHITIS [None]
